FAERS Safety Report 5274336-9 (Version None)
Quarter: 2007Q1

REPORT INFORMATION
  Report Type: 
  Country: None (occurrence: None)
  Receive Date: 20070323
  Receipt Date: 20070312
  Transmission Date: 20070707
  Serious: Yes (Disabling, Other)
  Sender: FDA-Public Use
  Company Number: US-PFIZER INC-2006105408

PATIENT
  Age: 50 Year
  Sex: Female
  Weight: 45.4 kg

DRUGS (3)
  1. RELPAX [Suspect]
     Indication: MIGRAINE
     Route: 048
     Dates: start: 20050401, end: 20060801
  2. RELPAX [Suspect]
     Indication: HEADACHE
  3. RELPAX [Suspect]
     Indication: MIGRAINE WITH AURA

REACTIONS (4)
  - ARTHRALGIA [None]
  - DRUG INEFFECTIVE [None]
  - JOINT STIFFNESS [None]
  - SALIVARY GLAND ENLARGEMENT [None]
